FAERS Safety Report 8144229-8 (Version None)
Quarter: 2012Q1

REPORT INFORMATION
  Report Type: 
  Country: None (occurrence: None)
  Receive Date: 20120214
  Receipt Date: 20120207
  Transmission Date: 20120608
  Serious: Yes (Death, Life-Threatening, Hospitalization)
  Sender: FDA-Public Use
  Company Number: 2012SP007103

PATIENT
  Age: 46 Year
  Sex: Male

DRUGS (2)
  1. TEMOZOLOMIDE [Suspect]
     Dosage: 1650 MG;PO
     Route: 048
     Dates: start: 20110926, end: 20111222
  2. TEMOZOLOMIDE [Suspect]
     Indication: GLIOBLASTOMA MULTIFORME
     Dosage: 2275 MG;PO
     Route: 048
     Dates: start: 20110926, end: 20111216

REACTIONS (15)
  - FURUNCLE [None]
  - SKIN INFECTION [None]
  - ACUTE RESPIRATORY DISTRESS SYNDROME [None]
  - RASH [None]
  - PROCEDURAL HAEMORRHAGE [None]
  - PULMONARY OEDEMA [None]
  - ERYTHEMA [None]
  - NECROTISING FASCIITIS [None]
  - HEART RATE INCREASED [None]
  - LYMPHOCYTE COUNT DECREASED [None]
  - ANAEMIA [None]
  - CELLULITIS [None]
  - PAIN [None]
  - WHITE BLOOD CELL COUNT DECREASED [None]
  - RESPIRATORY FAILURE [None]
